FAERS Safety Report 5088582-0 (Version None)
Quarter: 2006Q3

REPORT INFORMATION
  Report Type: 
  Country: None (occurrence: None)
  Receive Date: 20060825
  Receipt Date: 20060817
  Transmission Date: 20061208
  Serious: Yes (Death)
  Sender: FDA-Public Use
  Company Number: US-BAYER-200613491BCC

PATIENT
  Sex: Male

DRUGS (1)
  1. PHILLIPS MILK OF MAGNESIA CHERRY [Suspect]
     Indication: DRUG USE FOR UNKNOWN INDICATION
     Route: 048

REACTIONS (1)
  - CARDIAC VALVE DISEASE [None]
